FAERS Safety Report 15708565 (Version 3)
Quarter: 2019Q1

REPORT INFORMATION
  Report Type: Spontaneous
  Country: US (occurrence: US)
  Receive Date: 20181211
  Receipt Date: 20190125
  Transmission Date: 20190417
  Serious: No
  Sender: FDA-Public Use
  Company Number: US-ASTRAZENECA-2018SF58635

PATIENT
  Age: 62 Year
  Sex: Female

DRUGS (1)
  1. SYMBICORT [Suspect]
     Active Substance: BUDESONIDE\FORMOTEROL FUMARATE DIHYDRATE
     Indication: CHRONIC OBSTRUCTIVE PULMONARY DISEASE
     Dosage: 160/4.5 MCG TWO PUFFS TWICE DAILY
     Route: 055

REACTIONS (13)
  - Visual acuity reduced [Unknown]
  - Pulmonary function test decreased [Unknown]
  - Chronic obstructive pulmonary disease [Unknown]
  - Off label use [Unknown]
  - Throat irritation [Unknown]
  - Off label use of device [Unknown]
  - Device malfunction [Unknown]
  - Intentional device misuse [Unknown]
  - Malaise [Unknown]
  - Dyspnoea [Unknown]
  - Oral pain [Unknown]
  - Underdose [Unknown]
  - Product dose omission [Unknown]
